FAERS Safety Report 9256688 (Version 1)
Quarter: 2013Q2

REPORT INFORMATION
  Report Type: Spontaneous
  Country: US (occurrence: US)
  Receive Date: 20130426
  Receipt Date: 20130426
  Transmission Date: 20140414
  Serious: No
  Sender: FDA-Public Use
  Company Number: US-BIOGENIDEC-2013BI035937

PATIENT
  Sex: Female

DRUGS (1)
  1. AVONEX [Suspect]
     Indication: MULTIPLE SCLEROSIS
     Route: 030

REACTIONS (5)
  - Sneezing [Not Recovered/Not Resolved]
  - Speech disorder [Not Recovered/Not Resolved]
  - Cough [Not Recovered/Not Resolved]
  - Respiratory distress [Not Recovered/Not Resolved]
  - Malaise [Not Recovered/Not Resolved]
